FAERS Safety Report 18661159 (Version 1)
Quarter: 2020Q4

REPORT INFORMATION
  Report Type: Spontaneous
  Country: US (occurrence: US)
  Receive Date: 20201224
  Receipt Date: 20201224
  Transmission Date: 20210114
  Serious: No
  Sender: FDA-Public Use
  Company Number: None

PATIENT
  Age: 53 Year
  Sex: Male

DRUGS (5)
  1. ASPIRIN ADULT LOW DOSE [Concomitant]
     Active Substance: ASPIRIN
  2. DIAZEPAM. [Concomitant]
     Active Substance: DIAZEPAM
  3. SUTENT [Suspect]
     Active Substance: SUNITINIB MALATE
  4. ATORVASTATIN CALCIUM. [Concomitant]
     Active Substance: ATORVASTATIN CALCIUM
  5. PAROXETINE HCL [Concomitant]
     Active Substance: PAROXETINE HYDROCHLORIDE

REACTIONS (1)
  - Electrocardiogram abnormal [None]

NARRATIVE: CASE EVENT DATE: 20201224
